FAERS Safety Report 5269201-7 (Version None)
Quarter: 2007Q1

REPORT INFORMATION
  Report Type: 
  Country: None (occurrence: None)
  Receive Date: 20070319
  Receipt Date: 20070305
  Transmission Date: 20070707
  Serious: Yes (Life-Threatening, Hospitalization)
  Sender: FDA-Public Use
  Company Number: JP-ROCHE-470086

PATIENT
  Age: 59 Year
  Sex: Male

DRUGS (12)
  1. TICLOPIDINE HCL [Suspect]
     Indication: THROMBOSIS PROPHYLAXIS
     Dosage: ADDITIONAL INDICATION CORONARY ARTERIAL STENT PLACEMENT
     Route: 048
     Dates: start: 20060922, end: 20061010
  2. LANSOPRAZOLE [Suspect]
     Indication: DUODENAL ULCER
     Route: 048
     Dates: start: 20051215, end: 20061010
  3. ANCARON [Suspect]
     Indication: VENTRICULAR TACHYCARDIA
     Route: 048
     Dates: start: 20060915, end: 20061010
  4. ARTIST [Concomitant]
     Indication: CARDIAC FAILURE
     Dosage: 14-SEP-2006 20-SEP-2006 2.5 MG QD 21-SEP-2006 27-SEP-2006 5 MG QD 28-SEP-2006 03-OCT-2006 7.5 MG QD+
     Route: 048
     Dates: start: 20060913
  5. ALDACTONE [Concomitant]
     Indication: CARDIAC FAILURE
     Route: 048
  6. ALLOPURINOL [Concomitant]
     Indication: DIABETES MELLITUS
     Route: 048
     Dates: start: 20060915, end: 20061010
  7. BLOPRESS [Concomitant]
     Route: 048
     Dates: start: 20051115, end: 20061002
  8. AMOBAN [Concomitant]
     Route: 048
     Dates: start: 20060907, end: 20060912
  9. DIGOSIN [Concomitant]
     Indication: CARDIAC FAILURE
     Route: 048
     Dates: start: 20060908, end: 20061002
  10. LASIX [Concomitant]
     Indication: CARDIAC FAILURE
     Route: 054
     Dates: start: 20060908
  11. PLETAL [Concomitant]
  12. GASLON N [Concomitant]

REACTIONS (4)
  - AGRANULOCYTOSIS [None]
  - CHOLESTASIS [None]
  - PANCYTOPENIA [None]
  - TOXIC SKIN ERUPTION [None]
